FAERS Safety Report 8942298 (Version 2)
Quarter: 2013Q1

REPORT INFORMATION
  Report Type: Spontaneous
  Country: US (occurrence: None)
  Receive Date: 20121123
  Receipt Date: 20121205
  Transmission Date: 20140127
  Serious: Yes (Other)
  Sender: FDA-Public Use
  Company Number: DSA_60995_2012

PATIENT
  Age: 29 Year
  Sex: Female

DRUGS (4)
  1. WELLBUTRIN [Suspect]
     Indication: DEPRESSION
     Route: 048
     Dates: start: 200901, end: 20121001
  2. VIIBRYD [Suspect]
     Indication: DEPRESSION
     Route: 048
     Dates: start: 20120629, end: 20120705
  3. LAMICTAL [Concomitant]
  4. KLONOPIN [Concomitant]

REACTIONS (4)
  - Irritability [None]
  - Head injury [None]
  - Agitation [None]
  - Convulsion [None]
